FAERS Safety Report 4292642-1 (Version None)
Quarter: 2004Q1

REPORT INFORMATION
  Report Type: 
  Country: None (occurrence: None)
  Receive Date: 20040126
  Receipt Date: 20031002
  Transmission Date: 20041129
  Serious: No
  Sender: FDA-Public Use
  Company Number: USA031048917

PATIENT
  Age: 73 Year
  Sex: Female

DRUGS (5)
  1. FORTEO [Suspect]
     Indication: RIB FRACTURE
     Dosage: 20 UG/DAY
     Dates: start: 20030909
  2. PLAVIX [Concomitant]
  3. PREVACID [Concomitant]
  4. AMBIEN (ZOLPIDINE TARTRATE) [Concomitant]
  5. XANAX [Concomitant]

REACTIONS (3)
  - ASTHENIA [None]
  - FATIGUE [None]
  - PALPITATIONS [None]
